FAERS Safety Report 4510124-6 (Version None)
Quarter: 2004Q4

REPORT INFORMATION
  Report Type: 
  Country: None (occurrence: None)
  Receive Date: 20041124
  Receipt Date: 20041113
  Transmission Date: 20050328
  Serious: Yes (Hospitalization)
  Sender: FDA-Public Use
  Company Number: JP-JNJFOC-20040809301

PATIENT
  Sex: Female

DRUGS (5)
  1. REMICADE [Suspect]
     Route: 042
  2. REMICADE [Suspect]
     Route: 042
  3. REMICADE [Suspect]
     Route: 042
  4. REMICADE [Suspect]
     Indication: RHEUMATOID ARTHRITIS
     Route: 042
  5. RHEUMATREX [Concomitant]

REACTIONS (18)
  - ABDOMINAL PAIN [None]
  - ABDOMINAL PAIN UPPER [None]
  - BACK PAIN [None]
  - BLOOD URINE PRESENT [None]
  - COLON CANCER [None]
  - DIARRHOEA [None]
  - FAECAL OCCULT BLOOD [None]
  - INFLAMMATION [None]
  - INTERVERTEBRAL DISC PROTRUSION [None]
  - LARGE INTESTINAL ULCER [None]
  - LUMBAR VERTEBRAL FRACTURE [None]
  - LYMPHOMA [None]
  - MUSCULAR WEAKNESS [None]
  - NAUSEA [None]
  - NECROSIS [None]
  - PELVIC PAIN [None]
  - STAPHYLOCOCCAL ABSCESS [None]
  - STRESS FRACTURE [None]
